FAERS Safety Report 10643848 (Version 2)
Quarter: 2014Q4

REPORT INFORMATION
  Report Type: Spontaneous
  Country: GB (occurrence: GB)
  Receive Date: 20141210
  Receipt Date: 20141210
  Transmission Date: 20150529
  Serious: Yes (Other)
  Sender: FDA-Public Use
  Company Number: GB-UCBSA-1004349

PATIENT
  Age: 57 Year
  Sex: Female

DRUGS (6)
  1. KEPPRA [Suspect]
     Active Substance: LEVETIRACETAM
     Indication: EPILEPSY
     Dosage: DOSE FREQ.: DAILY
     Route: 048
  2. KEPPRA [Interacting]
     Active Substance: LEVETIRACETAM
     Dosage: DOSE FREQ.: DAILY
     Route: 048
  3. KEPPRA [Interacting]
     Active Substance: LEVETIRACETAM
     Dosage: 500 MG, 2X/DAY (BID)
     Route: 048
  4. PHENOBARBITONE [Concomitant]
     Active Substance: PHENOBARBITAL
     Indication: EPILEPSY
     Dosage: DOSE FREQ.: DAILY
     Route: 048
  5. CARBAMAZEPINE. [Interacting]
     Active Substance: CARBAMAZEPINE
     Indication: EPILEPSY
     Dosage: DOSE FREQ.: DAILY
     Route: 048
  6. CARBAMAZEPINE. [Interacting]
     Active Substance: CARBAMAZEPINE
     Route: 048

REACTIONS (2)
  - Drug interaction [Recovered/Resolved]
  - Toxicity to various agents [Recovered/Resolved]
